FAERS Safety Report 8607916-0 (Version None)
Quarter: 2012Q3

REPORT INFORMATION
  Report Type: 
  Country: None (occurrence: None)
  Receive Date: 20120803
  Receipt Date: 20120731
  Transmission Date: 20120928
  Serious: Yes (Hospitalization, Other)
  Sender: FDA-Public Use
  Company Number: 2012032973

PATIENT
  Age: 20 Year
  Sex: Female

DRUGS (3)
  1. ETHINYL ESTRADIOL TAB [Concomitant]
  2. VIVAGLOBIN [Suspect]
     Indication: IMMUNODEFICIENCY COMMON VARIABLE
     Dosage: (WEEKLY SUBCUTANEOUS)
     Route: 058
  3. DROSPIRENONE (DROSPIRENONE) [Concomitant]

REACTIONS (4)
  - HAEMORRHAGIC CEREBRAL INFARCTION [None]
  - PARAESTHESIA [None]
  - HEMIPARESIS [None]
  - HEADACHE [None]
